FAERS Safety Report 15861563 (Version 1)
Quarter: 2019Q1

REPORT INFORMATION
  Report Type: Spontaneous
  Country: US (occurrence: US)
  Receive Date: 20190124
  Receipt Date: 20190124
  Transmission Date: 20190417
  Serious: Yes (Other)
  Sender: FDA-Public Use
  Company Number: US-PACIRA PHARMACEUTICALS, INC.-2019EXPUS00732

PATIENT

DRUGS (6)
  1. ONDANSETRON [Concomitant]
     Active Substance: ONDANSETRON
     Indication: PRODUCT USED FOR UNKNOWN INDICATION
     Dosage: UNK, INTRAOPERATIVELY
     Route: 065
  2. KETOROLAC [Concomitant]
     Active Substance: KETOROLAC\KETOROLAC TROMETHAMINE
     Indication: PRODUCT USED FOR UNKNOWN INDICATION
     Dosage: UNK, INTRAOPERATIVELY, UNLESS CONTRAINDICATED
     Route: 065
  3. DEXAMETHASONE. [Concomitant]
     Active Substance: DEXAMETHASONE
     Indication: PRODUCT USED FOR UNKNOWN INDICATION
     Dosage: UNK, INTRAOPERATIVELY
     Route: 065
  4. LIPOSOME BUPIVACAINE [Suspect]
     Active Substance: BUPIVACAINE
     Indication: NERVE BLOCK
     Dosage: 133 MG, SINGLE (20 ML)
  5. ACETAMINOPHEN. [Concomitant]
     Active Substance: ACETAMINOPHEN
     Indication: PRODUCT USED FOR UNKNOWN INDICATION
     Dosage: UNK, PRE- AND POSTOPERATIVELY
     Route: 048
  6. ALVIMOPAN [Concomitant]
     Active Substance: ALVIMOPAN
     Indication: PRODUCT USED FOR UNKNOWN INDICATION
     Dosage: UNK, PREOPERATIVELY
     Route: 065

REACTIONS (12)
  - Acute kidney injury [Unknown]
  - Pain [Unknown]
  - Ileus [Unknown]
  - Sepsis [Unknown]
  - Urinary tract infection [Unknown]
  - Urinary retention [Unknown]
  - Postoperative wound infection [Unknown]
  - Pruritus [Unknown]
  - Vomiting [Unknown]
  - Dizziness [Unknown]
  - Freezing phenomenon [Unknown]
  - Hyperhidrosis [Unknown]
